FAERS Safety Report 16363193 (Version 2)
Quarter: 2019Q3

REPORT INFORMATION
  Report Type: Spontaneous
  Country: SI (occurrence: SI)
  Receive Date: 20190528
  Receipt Date: 20190703
  Transmission Date: 20191004
  Serious: Yes (Hospitalization, Other)
  Sender: FDA-Public Use
  Company Number: SI-JNJFOC-20190532287

PATIENT
  Age: 81 Year
  Sex: Male
  Weight: 75 kg

DRUGS (13)
  1. XARELTO [Suspect]
     Active Substance: RIVAROXABAN
     Route: 048
  2. PROKINETIC [Concomitant]
     Route: 065
  3. METFORMIN [Concomitant]
     Active Substance: METFORMIN HYDROCHLORIDE
     Route: 065
  4. GLICLAZIDE [Concomitant]
     Active Substance: GLICLAZIDE
     Route: 065
  5. ROSUVASTATIN. [Concomitant]
     Active Substance: ROSUVASTATIN
     Route: 065
  6. ALPRAZOLAM. [Concomitant]
     Active Substance: ALPRAZOLAM
     Route: 065
  7. XARELTO [Suspect]
     Active Substance: RIVAROXABAN
     Route: 048
  8. FENOFIBRATE. [Concomitant]
     Active Substance: FENOFIBRATE
     Route: 065
  9. PERINDOPRIL [Concomitant]
     Active Substance: PERINDOPRIL
     Route: 065
  10. XARELTO [Suspect]
     Active Substance: RIVAROXABAN
     Indication: ATRIAL FIBRILLATION
     Dosage: 20 MG, QD
     Route: 048
  11. AMLODIPINE [Concomitant]
     Active Substance: AMLODIPINE BESYLATE
     Route: 065
  12. INDAPAMIDE. [Concomitant]
     Active Substance: INDAPAMIDE
     Route: 065
  13. RANOLAZINE. [Concomitant]
     Active Substance: RANOLAZINE
     Route: 065

REACTIONS (16)
  - Melaena [Unknown]
  - Abdominal distension [Unknown]
  - Abdominal pain [Unknown]
  - Constipation [Unknown]
  - Dyspnoea [Unknown]
  - Lipoma [Unknown]
  - Pneumatosis intestinalis [Unknown]
  - Iron deficiency anaemia [Unknown]
  - Intestinal ischaemia [Unknown]
  - Urinary retention [Unknown]
  - Infection [Unknown]
  - Haematemesis [Unknown]
  - Vomiting [Unknown]
  - Haemorrhage [Unknown]
  - Sepsis [Unknown]
  - Gastrointestinal angiodysplasia [Unknown]
